FAERS Safety Report 13700902 (Version 1)
Quarter: 2017Q2

REPORT INFORMATION
  Report Type: Spontaneous
  Country: PL (occurrence: PL)
  Receive Date: 20170629
  Receipt Date: 20170629
  Transmission Date: 20170830
  Serious: Yes (Other)
  Sender: FDA-Public Use
  Company Number: PL-REGENERON PHARMACEUTICALS, INC.-2017-17899

PATIENT

DRUGS (1)
  1. AFLIBERCEPT IAI [Suspect]
     Active Substance: AFLIBERCEPT
     Indication: AGE-RELATED MACULAR DEGENERATION
     Dosage: AMOUNT OF INJECTIONS: 7
     Route: 031

REACTIONS (1)
  - Retinal haemorrhage [Unknown]
